FAERS Safety Report 19375123 (Version 2)
Quarter: 2021Q3

REPORT INFORMATION
  Report Type: Spontaneous
  Country: US (occurrence: US)
  Receive Date: 20210604
  Receipt Date: 20210901
  Transmission Date: 20211014
  Serious: Yes (Hospitalization)
  Sender: FDA-Public Use
  Company Number: US-THERAPEUTICSMD-2021TMD01577

PATIENT
  Age: 20 Year
  Sex: Female
  Weight: 41.4 kg

DRUGS (2)
  1. ANNOVERA [Suspect]
     Active Substance: ETHINYL ESTRADIOL\SEGESTERONE ACETATE
     Indication: CONTRACEPTION
     Dosage: 0.15/0.013 MG VAGINAL RING
     Route: 067
     Dates: start: 202010
  2. PROAIR HFA [Concomitant]
     Active Substance: ALBUTEROL SULFATE
     Dosage: 2 PUFFS, 4X/DAY (EVERY 6 HOURS), AS NEEDED

REACTIONS (5)
  - Abdominal pain [Unknown]
  - Pulmonary embolism [Unknown]
  - Gastroenteritis viral [Unknown]
  - Anxiety [Unknown]
  - Headache [Unknown]

NARRATIVE: CASE EVENT DATE: 202104
